FAERS Safety Report 6818706-3 (Version None)
Quarter: 2010Q3

REPORT INFORMATION
  Report Type: 
  Country: None (occurrence: None)
  Receive Date: 20100706
  Receipt Date: 20100630
  Transmission Date: 20110219
  Serious: Yes (Hospitalization)
  Sender: FDA-Public Use
  Company Number: US-GILEAD-2010-0028131

PATIENT
  Sex: Female
  Weight: 63.56 kg

DRUGS (7)
  1. LETAIRIS [Suspect]
     Indication: PULMONARY ARTERIAL HYPERTENSION
     Route: 048
     Dates: start: 20090204
  2. ASPIRIN [Concomitant]
  3. DILTIAZEM [Concomitant]
  4. DEMADEX [Concomitant]
  5. TETRACYCLINE [Concomitant]
  6. POTASSIUM CHLORIDE [Concomitant]
  7. VITAMIN E [Concomitant]

REACTIONS (1)
  - PNEUMONIA [None]
